FAERS Safety Report 15795614 (Version 1)
Quarter: 2019Q1

REPORT INFORMATION
  Report Type: Report from Study
  Country: US (occurrence: US)
  Receive Date: 20190107
  Receipt Date: 20190107
  Transmission Date: 20190417
  Serious: Yes (Death, Other)
  Sender: FDA-Public Use
  Company Number: US-BAUSCH-BL-2018-012357

PATIENT
  Age: 71 Year
  Sex: Female
  Weight: 74.91 kg

DRUGS (4)
  1. PEPCID [Concomitant]
     Active Substance: FAMOTIDINE
     Indication: PRODUCT USED FOR UNKNOWN INDICATION
  2. XIFAXAN [Suspect]
     Active Substance: RIFAXIMIN
     Indication: LIVER DISORDER
     Route: 048
     Dates: start: 2018, end: 20180421
  3. XIFAXAN [Suspect]
     Active Substance: RIFAXIMIN
     Indication: HEPATIC CIRRHOSIS
  4. MORPHINE [Concomitant]
     Active Substance: MORPHINE
     Indication: ARTHRALGIA

REACTIONS (9)
  - Dysstasia [Unknown]
  - Hip fracture [Unknown]
  - Symptom recurrence [Unknown]
  - Tremor [Unknown]
  - Product availability issue [Unknown]
  - Fall [Unknown]
  - Therapy cessation [Unknown]
  - Death [Fatal]
  - Ammonia abnormal [Unknown]

NARRATIVE: CASE EVENT DATE: 2018
